FAERS Safety Report 7144789-X (Version None)
Quarter: 2010Q4

REPORT INFORMATION
  Report Type: 
  Country: None (occurrence: None)
  Receive Date: 20101112
  Receipt Date: 20100804
  Transmission Date: 20110411
  Serious: No
  Sender: FDA-Public Use
  Company Number: 1000015311

PATIENT
  Age: 63 Year
  Sex: Female

DRUGS (19)
  1. SAVELLA [Suspect]
     Indication: FIBROMYALGIA
     Dosage: SEE IMAGE
     Dates: start: 20100601, end: 20100601
  2. SAVELLA [Suspect]
     Indication: FIBROMYALGIA
     Dosage: SEE IMAGE
     Dates: start: 20100602, end: 20100603
  3. SAVELLA [Suspect]
     Indication: FIBROMYALGIA
     Dosage: SEE IMAGE
     Dates: start: 20100604, end: 20100607
  4. SAVELLA [Suspect]
     Indication: FIBROMYALGIA
     Dosage: SEE IMAGE
     Dates: start: 20100608, end: 20100701
  5. NORCO [Concomitant]
  6. ADVAIR [Concomitant]
  7. PROVENTIL [Concomitant]
  8. BENTYL [Concomitant]
  9. CARAFATE [Concomitant]
  10. HYDROCHLOROTHIAZIDE [Concomitant]
  11. LOTENSIN [Concomitant]
  12. PRILOSEC [Concomitant]
  13. SYNTHROID [Concomitant]
  14. TRAZODONE [Concomitant]
  15. ACETAMINOPHEN [Concomitant]
  16. VYVANSE [Concomitant]
  17. XANAX [Concomitant]
  18. ZONEGRAN [Concomitant]
  19. ZYRTEC [Concomitant]

REACTIONS (1)
  - MIGRAINE [None]
